FAERS Safety Report 4270465-7 (Version None)
Quarter: 2004Q1

REPORT INFORMATION
  Report Type: 
  Country: None (occurrence: None)
  Receive Date: 20040114
  Receipt Date: 20040106
  Transmission Date: 20041129
  Serious: Yes (Other)
  Sender: FDA-Public Use
  Company Number: GB-GLAXOSMITHKLINE-B0319126A

PATIENT
  Age: 60 Year
  Sex: Female

DRUGS (2)
  1. MALARONE [Suspect]
     Indication: MALARIA PROPHYLAXIS
     Route: 048
     Dates: start: 20031031, end: 20031122
  2. RALOXIFENE HCL [Concomitant]
     Dosage: 60MG PER DAY
     Route: 048

REACTIONS (2)
  - DEPRESSION [None]
  - THINKING ABNORMAL [None]
